FAERS Safety Report 5186729-9 (Version None)
Quarter: 2006Q4

REPORT INFORMATION
  Report Type: 
  Country: None (occurrence: None)
  Receive Date: 20061208
  Receipt Date: 20061127
  Transmission Date: 20070319
  Serious: Yes (Life-Threatening, Hospitalization, Other)
  Sender: FDA-Public Use
  Company Number: HQWYE788201DEC05

PATIENT
  Age: 4 Year
  Sex: Male
  Weight: 24.9 kg

DRUGS (6)
  1. BENEFIX [Suspect]
     Indication: FACTOR IX DEFICIENCY
     Dosage: SEE IMAGE
     Route: 042
     Dates: start: 19991101, end: 19991221
  2. BENEFIX [Suspect]
     Indication: FACTOR IX DEFICIENCY
     Dosage: SEE IMAGE
     Route: 042
     Dates: start: 20030929, end: 20031017
  3. BENEFIX [Suspect]
     Indication: FACTOR IX DEFICIENCY
     Dosage: SEE IMAGE
     Route: 042
     Dates: start: 20031020, end: 20031116
  4. BENEFIX [Suspect]
     Indication: FACTOR IX DEFICIENCY
     Dosage: SEE IMAGE
     Route: 042
     Dates: start: 20031116, end: 20040119
  5. BENEFIX [Suspect]
     Indication: FACTOR IX DEFICIENCY
     Dosage: SEE IMAGE
     Route: 042
     Dates: start: 20040119, end: 20040903
  6. BENEFIX [Suspect]
     Indication: FACTOR IX DEFICIENCY
     Dosage: SEE IMAGE
     Route: 042
     Dates: start: 20040903

REACTIONS (3)
  - ANAPHYLACTIC REACTION [None]
  - ANTI FACTOR IX ANTIBODY POSITIVE [None]
  - DRUG HYPERSENSITIVITY [None]
